FAERS Safety Report 4877053-X (Version None)
Quarter: 2005Q4

REPORT INFORMATION
  Report Type: 
  Country: None (occurrence: None)
  Receive Date: 20051206
  Receipt Date: 20050816
  Transmission Date: 20060501
  Serious: No
  Sender: FDA-Public Use
  Company Number: USA0508105659

PATIENT
  Age: 67 Year
  Sex: Female

DRUGS (3)
  1. CYMBALTA [Suspect]
     Indication: DEPRESSION
     Dosage: 60 MG DAY
     Dates: start: 20050201, end: 20050811
  2. NEURONTIN [Concomitant]
  3. VITAMINS [Concomitant]

REACTIONS (4)
  - CRYING [None]
  - FEELING HOT [None]
  - HYPERHIDROSIS [None]
  - THIRST [None]
